FAERS Safety Report 9067092 (Version 1)
Quarter: 2013Q1

REPORT INFORMATION
  Report Type: Spontaneous
  Country: US (occurrence: US)
  Receive Date: 20130214
  Receipt Date: 20130214
  Transmission Date: 20140127
  Serious: No
  Sender: FDA-Public Use
  Company Number: US-COVIDIEN/TYCO HEALTHCARE/MALLINCKRODT-T201204135

PATIENT
  Age: 47 Year
  Sex: Female

DRUGS (6)
  1. FENTANYL TRANSDERMAL SYSTEM [Suspect]
     Indication: PAIN
     Dosage: 100 UG/HR, 2 FTS Q 72 HOURS
     Route: 062
     Dates: start: 20121116
  2. OXYCONTIN [Concomitant]
     Indication: PAIN
     Dosage: 80 MG, 2 TABS TWICE DAILY
  3. OXYCODONE [Concomitant]
     Indication: PAIN
     Dosage: 30 MG, EVERY 2 HOURS PRN, USED 4-5 /DAY
  4. ALPRAZOLAM [Concomitant]
     Dosage: TAKES UP TO 3 A DAY
  5. SOMA [Concomitant]
     Indication: MUSCLE SPASMS
     Dosage: UNK
  6. REMERON [Concomitant]
     Indication: DEPRESSION
     Dosage: 45 MG, QD AT BEDTIME

REACTIONS (6)
  - Activities of daily living impaired [Unknown]
  - Pain [Unknown]
  - Somnolence [Unknown]
  - Hyperhidrosis [Unknown]
  - Insomnia [Unknown]
  - Blood pressure increased [Unknown]
